FAERS Safety Report 5693061-3 (Version None)
Quarter: 2008Q2

REPORT INFORMATION
  Report Type: 
  Country: None (occurrence: None)
  Receive Date: 20080402
  Receipt Date: 20080402
  Transmission Date: 20081010
  Serious: Yes (Death)
  Sender: FDA-Public Use
  Company Number: None

PATIENT
  Age: 73 Year
  Sex: Male
  Weight: 96.1626 kg

DRUGS (1)
  1. LEVAQUIN [Suspect]

REACTIONS (1)
  - COMPLETED SUICIDE [None]
